FAERS Safety Report 20608886 (Version 1)
Quarter: 2022Q1

REPORT INFORMATION
  Report Type: Spontaneous
  Country: CA (occurrence: CA)
  Receive Date: 20220317
  Receipt Date: 20220317
  Transmission Date: 20220424
  Serious: Yes (Death)
  Sender: FDA-Public Use
  Company Number: CA-PFIZER INC-202200371170

PATIENT
  Age: 58 Year
  Sex: Male
  Weight: 60 kg

DRUGS (10)
  1. HYDROMORPHONE HYDROCHLORIDE [Suspect]
     Active Substance: HYDROMORPHONE HYDROCHLORIDE
     Dosage: UNK
  2. DIAZEPAM [Suspect]
     Active Substance: DIAZEPAM
     Dosage: UNK
  3. MORPHINE SULFATE [Suspect]
     Active Substance: MORPHINE SULFATE
     Dosage: UNK
  4. HYDROCODONE BITARTRATE [Suspect]
     Active Substance: HYDROCODONE BITARTRATE
     Dosage: UNK
  5. NORDAZEPAM [Suspect]
     Active Substance: NORDAZEPAM
     Dosage: UNK
  6. OXAZEPAM [Suspect]
     Active Substance: OXAZEPAM
     Dosage: UNK
  7. TEMAZEPAM [Suspect]
     Active Substance: TEMAZEPAM
     Dosage: UNK
  8. TYLENOL WITH CODEINE [Suspect]
     Active Substance: ACETAMINOPHEN\CODEINE PHOSPHATE
     Indication: Pain
     Dosage: UNK
  9. ALBUTEROL [Concomitant]
     Active Substance: ALBUTEROL
     Dosage: UNK
  10. CYANOCOBALAMIN [Concomitant]
     Active Substance: CYANOCOBALAMIN
     Dosage: UNK

REACTIONS (6)
  - Analgesic drug level [Fatal]
  - Antasthmatic drug level [Fatal]
  - Opiates positive [Fatal]
  - Postmortem blood drug level abnormal [Fatal]
  - Reaction to excipient [Fatal]
  - Toxicity to various agents [Fatal]
